FAERS Safety Report 9760147 (Version 2)
Quarter: 2013Q4

REPORT INFORMATION
  Report Type: Spontaneous
  Country: US (occurrence: US)
  Receive Date: 20131216
  Receipt Date: 20131217
  Transmission Date: 20140711
  Serious: No
  Sender: FDA-Public Use
  Company Number: US-PFIZER INC-2013359699

PATIENT
  Age: 34 Year
  Sex: Male
  Weight: 90.7 kg

DRUGS (5)
  1. LYRICA [Suspect]
     Indication: NEURALGIA
     Dosage: 300 MG, 2X/DAY
  2. LYRICA [Suspect]
     Indication: BACK PAIN
  3. LORTAB [Concomitant]
     Dosage: UNK
  4. PAXIL [Concomitant]
     Dosage: UNK
  5. TRAMADOL [Concomitant]
     Dosage: UNK

REACTIONS (2)
  - Depression [Unknown]
  - Therapeutic response unexpected [Unknown]
